FAERS Safety Report 20862826 (Version 3)
Quarter: 2022Q2

REPORT INFORMATION
  Report Type: Report from Study
  Country: CA (occurrence: CA)
  Receive Date: 20220523
  Receipt Date: 20220610
  Transmission Date: 20220721
  Serious: Yes (Hospitalization, Other)
  Sender: FDA-Public Use
  Company Number: CA-GILEAD-2022-0581102

PATIENT
  Sex: Female

DRUGS (4)
  1. SACITUZUMAB GOVITECAN [Suspect]
     Active Substance: SACITUZUMAB GOVITECAN
     Indication: Triple negative breast cancer
     Dosage: 494 MG
     Route: 042
     Dates: start: 20220429
  2. DEXAMETHASONE [Concomitant]
     Active Substance: DEXAMETHASONE
     Dosage: 4 MG ORALLY (PRE- MEDICATION PRIOR TO TRODELVY)
  3. ONDANSETRON HYDROCHLORIDE [Concomitant]
     Active Substance: ONDANSETRON HYDROCHLORIDE
     Dosage: 8 MG ORALLY (PRE- MEDICATION PRIOR TO TRODELVY)
  4. CAPECITABINE [Concomitant]
     Active Substance: CAPECITABINE

REACTIONS (4)
  - Neutropenia [Unknown]
  - Hypophagia [Unknown]
  - Dehydration [Unknown]
  - Weight decreased [Not Recovered/Not Resolved]
